FAERS Safety Report 5051774-0 (Version None)
Quarter: 2006Q3

REPORT INFORMATION
  Report Type: 
  Country: None (occurrence: None)
  Receive Date: 20060712
  Receipt Date: 20060712
  Transmission Date: 20061208
  Serious: Yes (Other)
  Sender: FDA-Public Use
  Company Number: None

PATIENT
  Age: 70 Year
  Sex: Male
  Weight: 106.6 kg

DRUGS (9)
  1. SIMVASTATIN [Suspect]
  2. OMEPRAZOLE [Concomitant]
  3. VARDENAFIL HCL [Concomitant]
  4. ALBUTEROL SPIROS [Concomitant]
  5. FLUOXETINE HCL [Concomitant]
  6. SIMVASTATIN [Concomitant]
  7. CETIRIZINE HCL [Concomitant]
  8. FLUTICASONE PROP [Concomitant]
  9. CLOTRIMAZOLE [Concomitant]

REACTIONS (1)
  - MYALGIA [None]
